FAERS Safety Report 13013948 (Version 1)
Quarter: 2016Q4

REPORT INFORMATION
  Report Type: Spontaneous
  Country: US (occurrence: US)
  Receive Date: 20161209
  Receipt Date: 20161209
  Transmission Date: 20170207
  Serious: No
  Sender: FDA-Public Use
  Company Number: US-GLAXOSMITHKLINE-US2016182008

PATIENT
  Age: 74 Year
  Sex: Male

DRUGS (4)
  1. SINGULAIR [Concomitant]
     Active Substance: MONTELUKAST SODIUM
  2. ALBUTEROL SULFATE NEBULISER SOLUTION [Concomitant]
     Active Substance: ALBUTEROL SULFATE
  3. VENTOLIN HFA [Suspect]
     Active Substance: ALBUTEROL SULFATE
     Indication: ASTHMA
     Dosage: 2 PUFF(S), PRN
     Route: 055
     Dates: start: 1996
  4. VENTOLIN HFA [Suspect]
     Active Substance: ALBUTEROL SULFATE
     Indication: CHRONIC OBSTRUCTIVE PULMONARY DISEASE

REACTIONS (5)
  - Drug dose omission [Recovered/Resolved]
  - Drug effect decreased [Unknown]
  - Dyspnoea [Recovered/Resolved]
  - Product cleaning inadequate [Unknown]
  - Underdose [Unknown]

NARRATIVE: CASE EVENT DATE: 20161205
